FAERS Safety Report 23351102 (Version 1)
Quarter: 2023Q4

REPORT INFORMATION
  Report Type: Spontaneous
  Country: CN (occurrence: CN)
  Receive Date: 20231229
  Receipt Date: 20231229
  Transmission Date: 20240109
  Serious: Yes (Hospitalization)
  Sender: FDA-Public Use
  Company Number: CN-002147023-NVSC2023CN275343

PATIENT
  Age: 32 Year
  Sex: Female
  Weight: 54 kg

DRUGS (4)
  1. TRAMETINIB [Suspect]
     Active Substance: TRAMETINIB
     Indication: Malignant melanoma
     Dosage: 2.000 MG, QD
     Route: 048
     Dates: start: 20231007, end: 20231213
  2. DABRAFENIB [Suspect]
     Active Substance: DABRAFENIB
     Indication: Malignant melanoma
     Dosage: 150.000 MG
     Route: 048
     Dates: start: 20231007, end: 20231009
  3. DABRAFENIB [Suspect]
     Active Substance: DABRAFENIB
     Dosage: 150.000 MG
     Route: 048
     Dates: start: 20231010, end: 20231209
  4. DABRAFENIB [Suspect]
     Active Substance: DABRAFENIB
     Dosage: 150.000 MG
     Route: 048
     Dates: start: 20231210, end: 20231213

REACTIONS (6)
  - White blood cell count decreased [Unknown]
  - Platelet count decreased [Unknown]
  - Neutrophil count decreased [Unknown]
  - Oropharyngeal pain [Unknown]
  - Pyrexia [Unknown]
  - Body temperature increased [Unknown]

NARRATIVE: CASE EVENT DATE: 20231213
